FAERS Safety Report 18979224 (Version 1)
Quarter: 2021Q1

REPORT INFORMATION
  Report Type: Other
  Country: US (occurrence: US)
  Receive Date: 20210308
  Receipt Date: 20210308
  Transmission Date: 20210420
  Serious: Yes (Hospitalization, Other)
  Sender: FDA-Public Use
  Company Number: US-EYWA PHARMA INC.-2107675

PATIENT
  Age: 4 Year
  Sex: Male

DRUGS (1)
  1. BACLOFEN. [Suspect]
     Active Substance: BACLOFEN
     Indication: MITOCHONDRIAL ENCEPHALOMYOPATHY
     Route: 037

REACTIONS (5)
  - Pain [Recovering/Resolving]
  - Paradoxical drug reaction [Recovering/Resolving]
  - Condition aggravated [Recovering/Resolving]
  - Muscle spasms [Recovering/Resolving]
  - Poor quality sleep [Recovering/Resolving]
